FAERS Safety Report 4968569-6 (Version None)
Quarter: 2006Q2

REPORT INFORMATION
  Report Type: 
  Country: None (occurrence: None)
  Receive Date: 20060411
  Receipt Date: 20060330
  Transmission Date: 20061013
  Serious: Yes (Other)
  Sender: FDA-Public Use
  Company Number: US-JNJFOC-20060301582

PATIENT
  Weight: 61.24 kg

DRUGS (7)
  1. REMICADE [Suspect]
     Indication: RHEUMATOID ARTHRITIS
     Dosage: 11 INFUSIONS TOTAL
     Route: 042
  2. METHOTREXATE [Concomitant]
     Route: 058
  3. METHOTREXATE [Concomitant]
     Indication: RHEUMATOID ARTHRITIS
     Route: 058
  4. ACTENOL [Concomitant]
     Indication: OSTEOPOROSIS
  5. BEXTRA [Concomitant]
  6. RELAFEN [Concomitant]
  7. MERCAPTOPURINE [Concomitant]

REACTIONS (2)
  - B-CELL UNCLASSIFIABLE LYMPHOMA LOW GRADE [None]
  - RHEUMATOID ARTHRITIS [None]
